FAERS Safety Report 18609309 (Version 1)
Quarter: 2020Q4

REPORT INFORMATION
  Report Type: Spontaneous
  Country: US (occurrence: US)
  Receive Date: 20201214
  Receipt Date: 20201214
  Transmission Date: 20210114
  Serious: Yes (Hospitalization, Other)
  Sender: FDA-Public Use
  Company Number: US-ROCHE-2725494

PATIENT
  Sex: Female

DRUGS (11)
  1. ELIQUIS [Concomitant]
     Active Substance: APIXABAN
  2. EXEMESTANE. [Concomitant]
     Active Substance: EXEMESTANE
  3. DOCETAXEL ANHYDROUS. [Concomitant]
     Active Substance: DOCETAXEL ANHYDROUS
  4. PEGFILGRASTIM [Suspect]
     Active Substance: PEGFILGRASTIM
     Indication: PRODUCT USED FOR UNKNOWN INDICATION
     Route: 065
  5. ESTROGEN [Concomitant]
     Active Substance: ESTROGENS
  6. NAB-PACLITAXEL [Concomitant]
     Active Substance: PACLITAXEL
     Dates: start: 20170601
  7. DENOSUMAB [Concomitant]
     Active Substance: DENOSUMAB
     Dosage: ONGOING : YES
  8. HERCEPTIN [Suspect]
     Active Substance: TRASTUZUMAB
     Indication: HER2 POSITIVE BREAST CANCER
     Route: 041
     Dates: start: 201702
  9. PERJETA [Suspect]
     Active Substance: PERTUZUMAB
     Indication: HER2 POSITIVE BREAST CANCER
     Route: 065
     Dates: start: 201702
  10. ANASTROZOLE. [Suspect]
     Active Substance: ANASTROZOLE
     Indication: PRODUCT USED FOR UNKNOWN INDICATION
     Route: 065
  11. DENOSUMAB [Concomitant]
     Active Substance: DENOSUMAB

REACTIONS (10)
  - Skin lesion [Unknown]
  - Tremor [Unknown]
  - Metastatic malignant melanoma [Unknown]
  - Nausea [Unknown]
  - Nasopharyngitis [Unknown]
  - Coagulopathy [Unknown]
  - Bone pain [Unknown]
  - Haematochezia [Unknown]
  - Pulmonary embolism [Unknown]
  - Arthropathy [Unknown]
